FAERS Safety Report 11837502 (Version 1)
Quarter: 2015Q4

REPORT INFORMATION
  Report Type: Spontaneous
  Country: US (occurrence: US)
  Receive Date: 20151215
  Receipt Date: 20151215
  Transmission Date: 20160305
  Serious: Yes (Other)
  Sender: FDA-Public Use
  Company Number: US-JNJFOC-20150121396

PATIENT
  Age: 66 Year
  Sex: Male
  Weight: 117 kg

DRUGS (12)
  1. SYMBICORT [Concomitant]
     Active Substance: BUDESONIDE\FORMOTEROL FUMARATE DIHYDRATE
     Dosage: 2 PUFFS
  2. AMITRIPTYLINE [Concomitant]
     Active Substance: AMITRIPTYLINE
     Dosage: QHS
     Route: 048
  3. ATIVAN [Concomitant]
     Active Substance: LORAZEPAM
     Dosage: AS NEEDED
     Route: 048
  4. CRESTOR [Concomitant]
     Active Substance: ROSUVASTATIN CALCIUM
     Route: 048
  5. IMBRUVICA [Suspect]
     Active Substance: IBRUTINIB
     Indication: NON-HODGKIN^S LYMPHOMA
     Route: 048
     Dates: start: 20140101, end: 201412
  6. LEVOTHYROXINE. [Concomitant]
     Active Substance: LEVOTHYROXINE
     Route: 048
  7. MULTIVITAMINS [Concomitant]
     Active Substance: VITAMINS
     Route: 048
  8. ZOFRAN [Concomitant]
     Active Substance: ONDANSETRON HYDROCHLORIDE
     Dosage: PRN
     Route: 048
  9. BISACODYL. [Concomitant]
     Active Substance: BISACODYL
     Dosage: PRN
     Route: 048
  10. CARVEDILOL. [Concomitant]
     Active Substance: CARVEDILOL
     Route: 048
  11. ALLOPURINOL. [Concomitant]
     Active Substance: ALLOPURINOL
     Route: 048
  12. LANOXIN [Concomitant]
     Active Substance: DIGOXIN
     Route: 048

REACTIONS (4)
  - Cardiomyopathy [Unknown]
  - Fatigue [Recovered/Resolved]
  - Asthenia [Recovered/Resolved]
  - Atrial fibrillation [Unknown]

NARRATIVE: CASE EVENT DATE: 201412
